FAERS Safety Report 9663655 (Version 1)
Quarter: 2013Q4

REPORT INFORMATION
  Report Type: Spontaneous
  Country: ES (occurrence: ES)
  Receive Date: 20131101
  Receipt Date: 20131101
  Transmission Date: 20140711
  Serious: Yes (Hospitalization)
  Sender: FDA-Public Use
  Company Number: PHHY2013ES122741

PATIENT
  Age: 71 Year
  Sex: Female

DRUGS (3)
  1. ZOMETA [Suspect]
     Route: 042
  2. BORTEZOMIB [Concomitant]
  3. DEXAMETHASONE [Concomitant]

REACTIONS (7)
  - Osteonecrosis of jaw [Recovering/Resolving]
  - Osteolysis [Recovering/Resolving]
  - Periodontitis [Recovering/Resolving]
  - Wound [Recovering/Resolving]
  - Primary sequestrum [Recovering/Resolving]
  - Pain [Recovered/Resolved]
  - Exposed bone in jaw [Recovering/Resolving]
